FAERS Safety Report 7244356-3 (Version None)
Quarter: 2011Q1

REPORT INFORMATION
  Report Type: 
  Country: None (occurrence: None)
  Receive Date: 20110118
  Receipt Date: 20110103
  Transmission Date: 20110831
  Serious: Yes (Hospitalization)
  Sender: FDA-Public Use
  Company Number: 024781

PATIENT
  Sex: Female
  Weight: 49 kg

DRUGS (7)
  1. AMITRIPTYLINE HCL [Concomitant]
  2. PENTASA [Concomitant]
  3. CIMZIA [Suspect]
     Indication: CROHN'S DISEASE
     Dosage: (400 MG 1X/MONTH SUBCUTANEOUS)
     Route: 058
     Dates: start: 20100817
  4. FLAGYL [Concomitant]
  5. CYMBALTA [Concomitant]
  6. PRAVASTATIN [Concomitant]
  7. NEURONTIN [Concomitant]

REACTIONS (5)
  - CONDITION AGGRAVATED [None]
  - HERPES ZOSTER [None]
  - RASH [None]
  - CROHN'S DISEASE [None]
  - INJECTION SITE HAEMATOMA [None]
